FAERS Safety Report 6671769-0 (Version None)
Quarter: 2010Q2

REPORT INFORMATION
  Report Type: 
  Country: None (occurrence: None)
  Receive Date: 20100407
  Receipt Date: 20100327
  Transmission Date: 20101027
  Serious: Yes (Other)
  Sender: FDA-Public Use
  Company Number: US-PFIZER INC-2010039399

PATIENT
  Sex: Female
  Weight: 54.422 kg

DRUGS (14)
  1. CHANTIX [Suspect]
     Indication: SMOKING CESSATION THERAPY
     Dosage: 0.5 MG, 1X/DAY
     Dates: start: 20100318
  2. ALBUTEROL [Concomitant]
     Indication: ASTHMA
     Dosage: UNK
  3. ALBUTEROL [Concomitant]
     Indication: HYPERSENSITIVITY
  4. XOLAIR [Concomitant]
     Indication: ASTHMA
     Dosage: UNK
  5. XOLAIR [Concomitant]
     Indication: HYPERSENSITIVITY
  6. ALOSETRON HYDROCHLORIDE [Concomitant]
     Indication: IRRITABLE BOWEL SYNDROME
     Dosage: UNK
  7. ZELNORM [Concomitant]
     Indication: IRRITABLE BOWEL SYNDROME
     Dosage: UNK
  8. CELEBREX [Concomitant]
     Indication: ARTHRITIS
     Dosage: UNK
  9. CALCIUM [Concomitant]
     Indication: ARTHRITIS
     Dosage: 600 MG, 2X/DAY
  10. ADDERALL 30 [Concomitant]
     Indication: ATTENTION DEFICIT/HYPERACTIVITY DISORDER
     Dosage: 20 MG, 2X/DAY
     Route: 048
  11. VITAMIN D [Concomitant]
     Dosage: 2000 MG, 1X/DAY
  12. IRON [Concomitant]
     Dosage: WEEKLY
  13. VITAMIN B COMPLEX CAP [Concomitant]
     Indication: APPETITE DISORDER
     Dosage: UNK
  14. CENTRUM [Concomitant]
     Dosage: UNK

REACTIONS (1)
  - NERVOUSNESS [None]
